FAERS Safety Report 21450329 (Version 1)
Quarter: 2022Q4

REPORT INFORMATION
  Report Type: Spontaneous
  Country: JP (occurrence: JP)
  Receive Date: 20221013
  Receipt Date: 20221013
  Transmission Date: 20230113
  Serious: Yes (Other)
  Sender: FDA-Public Use
  Company Number: JP-SA-SAC20221010001503

PATIENT
  Age: 62 Year
  Sex: Female

DRUGS (1)
  1. OXALIPLATIN [Suspect]
     Active Substance: OXALIPLATIN
     Dosage: REGIMEN: FOLFOX+PMAB
     Route: 042

REACTIONS (1)
  - Venoocclusive liver disease [Unknown]
